FAERS Safety Report 14255884 (Version 1)
Quarter: 2017Q4

REPORT INFORMATION
  Report Type: Spontaneous
  Country: AT (occurrence: AT)
  Receive Date: 20171206
  Receipt Date: 20171206
  Transmission Date: 20180321
  Serious: Yes (Other)
  Sender: FDA-Public Use
  Company Number: AT-JNJFOC-20171131754

PATIENT
  Age: 52 Year
  Sex: Male

DRUGS (3)
  1. DEPAKINE [Concomitant]
     Active Substance: VALPROATE SODIUM
     Indication: PRODUCT USED FOR UNKNOWN INDICATION
     Route: 065
  2. SEROQUEL [Concomitant]
     Active Substance: QUETIAPINE FUMARATE
     Indication: PRODUCT USED FOR UNKNOWN INDICATION
     Route: 065
  3. XEPLION [Suspect]
     Active Substance: PALIPERIDONE PALMITATE
     Indication: BIPOLAR I DISORDER
     Route: 030
     Dates: start: 2015

REACTIONS (3)
  - Huntington^s disease [Unknown]
  - Product use in unapproved indication [Unknown]
  - Off label use [Unknown]

NARRATIVE: CASE EVENT DATE: 2015
